FAERS Safety Report 8351175-3 (Version None)
Quarter: 2012Q2

REPORT INFORMATION
  Report Type: 
  Country: None (occurrence: None)
  Receive Date: 20120510
  Receipt Date: 20120509
  Transmission Date: 20120825
  Serious: Yes (Hospitalization)
  Sender: FDA-Public Use
  Company Number: US-PFIZER INC-2012113726

PATIENT
  Sex: Female

DRUGS (19)
  1. CHANTIX [Suspect]
     Dosage: UNK
     Route: 048
     Dates: end: 20120401
  2. CYMBALTA [Concomitant]
     Indication: NEUROPATHY PERIPHERAL
     Dosage: 60 MG, DAILY
  3. TIMOLOL [Concomitant]
     Indication: GLAUCOMA
     Dosage: UNK
  4. LIDODERM [Concomitant]
     Dosage: UNK, 3X/DAY
  5. AMANTADINE [Concomitant]
     Dosage: 4 MG, DAILY
  6. PLENDIL [Concomitant]
     Dosage: 10 MG, DAILY
  7. TRAZODONE [Concomitant]
     Indication: SLEEP DISORDER
     Dosage: 50 MG, DAILY
  8. OXYCODONE [Concomitant]
     Dosage: 5/325MG 5X/DAY
  9. ZOCOR [Concomitant]
     Dosage: 40 MG, DAILY
  10. BENADRYL [Concomitant]
     Dosage: UNK, DAILY
  11. CHANTIX [Suspect]
     Indication: SMOKING CESSATION THERAPY
     Dosage: 0.5 MG, DAILY
     Route: 048
     Dates: start: 20120302
  12. NEURONTIN [Concomitant]
     Dosage: 600 MG, 5X/DAY
  13. LASIX [Concomitant]
     Dosage: 60 MG, DAILY
  14. TOPAMAX [Concomitant]
     Dosage: 100 MG, 2X/DAY
  15. METFORMIN [Concomitant]
     Indication: DIABETES MELLITUS
     Dosage: 500 MG, 4X/DAY
  16. GLIPIZIDE [Concomitant]
     Indication: DIABETES MELLITUS
     Dosage: 5 MG, DAILY
  17. POTASSIUM [Concomitant]
     Dosage: 50 MEQ, DAILY
  18. VITAMIN TAB [Concomitant]
     Dosage: UNK
  19. SINGULAIR [Concomitant]
     Dosage: 10 MG, UNK

REACTIONS (2)
  - ABNORMAL DREAMS [None]
  - GALLBLADDER DISORDER [None]
